FAERS Safety Report 5644929-5 (Version None)
Quarter: 2008Q1

REPORT INFORMATION
  Report Type: 
  Country: None (occurrence: None)
  Receive Date: 20080229
  Receipt Date: 20071029
  Transmission Date: 20080703
  Serious: No
  Sender: FDA-Public Use
  Company Number: A0690824A

PATIENT
  Sex: Female

DRUGS (1)
  1. VALTREX [Suspect]
     Indication: DRUG USE FOR UNKNOWN INDICATION
     Route: 048

REACTIONS (4)
  - DRUG HYPERSENSITIVITY [None]
  - LIP SWELLING [None]
  - NASAL OEDEMA [None]
  - SWELLING FACE [None]
